FAERS Safety Report 10094190 (Version 1)
Quarter: 2014Q2

REPORT INFORMATION
  Report Type: Spontaneous
  Country: US (occurrence: None)
  Receive Date: 20140421
  Receipt Date: 20140421
  Transmission Date: 20141212
  Serious: Yes (Disabling, Other)
  Sender: FDA-Public Use
  Company Number: None

PATIENT
  Age: 40 Year
  Sex: Female
  Weight: 72.58 kg

DRUGS (1)
  1. MACROBID [Suspect]
     Indication: URINARY TRACT INFECTION
     Dosage: TWICE DAILY, TAKEN BY MOUTH
     Route: 048
     Dates: start: 20140321, end: 20140410

REACTIONS (12)
  - Dyspnoea [None]
  - Arthralgia [None]
  - Myalgia [None]
  - Headache [None]
  - Heart rate increased [None]
  - Fatigue [None]
  - Abdominal pain upper [None]
  - Back pain [None]
  - Dehydration [None]
  - Autoimmune hepatitis [None]
  - Drug-induced liver injury [None]
  - Vein discolouration [None]
